FAERS Safety Report 7919113-2 (Version None)
Quarter: 2011Q4

REPORT INFORMATION
  Report Type: 
  Country: None (occurrence: None)
  Receive Date: 20111116
  Receipt Date: 20111109
  Transmission Date: 20120403
  Serious: Yes (Other)
  Sender: FDA-Public Use
  Company Number: DE-AMGEN-DEUSP2011058549

PATIENT
  Age: 71 Year
  Sex: Female

DRUGS (3)
  1. CORTISONE ACETATE [Concomitant]
     Indication: AORTITIS
     Dosage: UNK
     Dates: start: 20070101
  2. PREDNISOLONE [Concomitant]
     Indication: AORTITIS
     Dosage: UNK
     Dates: start: 20070101
  3. PROLIA [Suspect]
     Indication: OSTEOPOROSIS
     Dosage: UNK
     Dates: start: 20110516

REACTIONS (2)
  - AORTITIS [None]
  - LIPIDS ABNORMAL [None]
